FAERS Safety Report 20097906 (Version 1)
Quarter: 2021Q4

REPORT INFORMATION
  Report Type: Spontaneous
  Country: IN (occurrence: IN)
  Receive Date: 20211122
  Receipt Date: 20211122
  Transmission Date: 20220303
  Serious: Yes (Hospitalization, Other)
  Sender: FDA-Public Use
  Company Number: IN-COLLEGIUM PHARMACEUTICAL, INC.-2021CGM01179

PATIENT
  Age: 22 Year
  Sex: Male

DRUGS (2)
  1. TAPENTADOL [Suspect]
     Active Substance: TAPENTADOL
     Dosage: CRUSH 100-200 MG; ONCE EVERY 2-3 HOURS; AVERAGE 700 MG DAILY
     Route: 042
  2. TAPENTADOL [Suspect]
     Active Substance: TAPENTADOL
     Dosage: INJECTED FIVE 100 MG TABLETS IN A SPAN OF 30 MINUTES
     Route: 042

REACTIONS (8)
  - Product preparation issue [Recovered/Resolved]
  - Incorrect route of product administration [Recovered/Resolved]
  - Drug dependence [Unknown]
  - Drug withdrawal syndrome [Unknown]
  - Somnolence [Recovered/Resolved]
  - Gait disturbance [Unknown]
  - Seizure [Recovered/Resolved]
  - Overdose [Recovered/Resolved]
